FAERS Safety Report 6375121-7 (Version None)
Quarter: 2009Q3

REPORT INFORMATION
  Report Type: 
  Country: None (occurrence: None)
  Receive Date: 20090921
  Receipt Date: 20090911
  Transmission Date: 20100115
  Serious: Yes (Hospitalization)
  Sender: FDA-Public Use
  Company Number: 2009US000742

PATIENT
  Age: 10 Year
  Sex: Male
  Weight: 45 kg

DRUGS (2)
  1. TACROLIMUS [Suspect]
     Indication: DERMATITIS ATOPIC
     Dosage: 0.1 %, WEEKLY, TOPICAL
     Route: 061
     Dates: start: 20000602, end: 20090101
  2. TRIAMCINOLONE [Concomitant]

REACTIONS (1)
  - APPENDICITIS [None]
